FAERS Safety Report 9435180 (Version 1)
Quarter: 2013Q3

REPORT INFORMATION
  Report Type: Spontaneous
  Country: DE (occurrence: None)
  Receive Date: 20130730
  Receipt Date: 20130730
  Transmission Date: 20140515
  Serious: Yes (Other)
  Sender: FDA-Public Use
  Company Number: GER/GER/13/0033135

PATIENT
  Age: 40 Year
  Sex: Female
  Weight: 67 kg

DRUGS (4)
  1. METOPROLOL (METOPROLOL) [Suspect]
     Indication: HYPERTENSION
     Route: 048
  2. NEPRESOL [Suspect]
     Indication: HYPERTENSION
     Route: 048
  3. PRESINOL (METHYLDOPA) [Concomitant]
  4. FOLIC ACID (FOLIC ACID) [Concomitant]

REACTIONS (4)
  - Pre-eclampsia [None]
  - Premature delivery [None]
  - Exposure during pregnancy [None]
  - Caesarean section [None]
